FAERS Safety Report 7447095-9 (Version None)
Quarter: 2011Q2

REPORT INFORMATION
  Report Type: 
  Country: None (occurrence: None)
  Receive Date: 20110429
  Receipt Date: 20110422
  Transmission Date: 20111010
  Serious: Yes (Hospitalization)
  Sender: FDA-Public Use
  Company Number: US-ROCHE-767685

PATIENT
  Sex: Female
  Weight: 49.9 kg

DRUGS (2)
  1. OXALIPLATIN [Concomitant]
     Indication: COLON CANCER
     Dates: start: 20110308
  2. XELODA [Suspect]
     Indication: COLON CANCER
     Route: 048
     Dates: start: 20110308, end: 20110308

REACTIONS (1)
  - ACUTE CORONARY SYNDROME [None]
